FAERS Safety Report 5901716-8 (Version None)
Quarter: 2008Q3

REPORT INFORMATION
  Report Type: 
  Country: None (occurrence: None)
  Receive Date: 20080929
  Receipt Date: 20080922
  Transmission Date: 20090109
  Serious: Yes (Death)
  Sender: FDA-Public Use
  Company Number: B0536911A

PATIENT
  Age: 35 Year
  Sex: Male

DRUGS (4)
  1. PAXIL [Suspect]
     Indication: DEPRESSION
     Dosage: 20MG PER DAY
     Route: 048
     Dates: start: 20080802, end: 20080801
  2. PAXIL [Suspect]
     Route: 048
     Dates: end: 20080801
  3. RISPERDAL [Concomitant]
     Dosage: 1MG PER DAY
     Route: 048
     Dates: start: 20080201
  4. DEPAS [Concomitant]
     Dosage: 1MG PER DAY
     Route: 048
     Dates: start: 20080201

REACTIONS (1)
  - COMPLETED SUICIDE [None]
